FAERS Safety Report 14809017 (Version 2)
Quarter: 2018Q2

REPORT INFORMATION
  Report Type: Spontaneous
  Country: IN (occurrence: IN)
  Receive Date: 20180425
  Receipt Date: 20180502
  Transmission Date: 20180711
  Serious: Yes (Other)
  Sender: FDA-Public Use
  Company Number: IN-ENDO PHARMACEUTICALS INC-2018-035848

PATIENT
  Age: 58 Year
  Sex: Male

DRUGS (3)
  1. HYDROCHLOROTHIAZIDE TABLETS [Suspect]
     Active Substance: HYDROCHLOROTHIAZIDE
     Indication: HYPERTENSION
     Dosage: UNKNOWN, UNKNOWN
     Route: 065
  2. ACETAZOLAMIDE. [Suspect]
     Active Substance: ACETAZOLAMIDE
     Indication: INTRAOCULAR PRESSURE INCREASED
     Dosage: 250 MG
     Route: 048
  3. BRIMONIDINE TARTRATE W/TIMOLOL [Concomitant]
     Indication: INTRAOCULAR PRESSURE INCREASED
     Dosage: UNKNOWN, BID
     Route: 061

REACTIONS (3)
  - Angle closure glaucoma [Recovered/Resolved]
  - Drug interaction [Recovered/Resolved]
  - Choroidal detachment [Recovered/Resolved]
